FAERS Safety Report 18905127 (Version 2)
Quarter: 2021Q1

REPORT INFORMATION
  Report Type: Spontaneous
  Country: TW (occurrence: TW)
  Receive Date: 20210217
  Receipt Date: 20210218
  Transmission Date: 20210420
  Serious: Yes (Death, Other)
  Sender: FDA-Public Use
  Company Number: TW-UCBSA-2021002211

PATIENT
  Age: 73 Year
  Sex: Male
  Weight: 63.4 kg

DRUGS (24)
  1. MEPEM [MEROPENEM] [Suspect]
     Active Substance: MEROPENEM
     Indication: RASH
     Dosage: 1000 MILLIGRAM, ONCE DAILY (QD)
     Route: 042
     Dates: start: 20200928, end: 20201010
  2. PROMERAN [Suspect]
     Active Substance: METOCLOPRAMIDE HYDROCHLORIDE
     Indication: GASTROINTESTINAL HAEMORRHAGE
     Dosage: 3.84 MILLIGRAM, 3X/DAY (TID)
     Route: 048
     Dates: start: 20201009, end: 20201013
  3. KONSUL [Suspect]
     Active Substance: PRIDINOL MESILATE
     Indication: SEIZURE
     Dosage: 500 MILLIGRAM, ONCE DAILY (QD)
     Route: 048
     Dates: start: 20200923, end: 20201116
  4. TETRACYCLINE HYDROCHLORIDE. [Suspect]
     Active Substance: TETRACYCLINE HYDROCHLORIDE
     Indication: ULCER
     Dosage: UNK, ONCE DAILY (QD)
  5. SITAGLIPTIN [Suspect]
     Active Substance: SITAGLIPTIN
     Indication: ATYPICAL PNEUMONIA
     Dosage: 100 MILLIGRAM, ONCE DAILY (QD)
  6. TAPIMYCIN [Suspect]
     Active Substance: PIPERACILLIN SODIUM\TAZOBACTAM SODIUM
     Indication: PRODUCT USED FOR UNKNOWN INDICATION
     Dosage: 3375 MILLIGRAM, 4X/DAY (QID)
     Dates: start: 202009
  7. CEFTAZIDIME. [Suspect]
     Active Substance: CEFTAZIDIME
     Indication: LIVER ABSCESS
  8. EXFORGE [Suspect]
     Active Substance: AMLODIPINE BESYLATE\VALSARTAN
     Indication: HYPERTENSION
     Dosage: 5.16 MILLIGRAM, ONCE DAILY (QD)
     Route: 048
     Dates: start: 20201005, end: 20201112
  9. DOXYCYCLINE. [Suspect]
     Active Substance: DOXYCYCLINE
     Indication: ATYPICAL PNEUMONIA
     Dosage: 100 MILLIGRAM, 2X/DAY (BID)
     Dates: start: 20201005, end: 20201027
  10. ACEMYCIN [AMIKACIN SULFATE] [Concomitant]
     Indication: PRODUCT USED FOR UNKNOWN INDICATION
     Dosage: UNK
  11. KEPPRA [Suspect]
     Active Substance: LEVETIRACETAM
     Indication: SEIZURE
     Dosage: 500 MILLIGRAM, 2X/DAY (BID)
     Route: 042
     Dates: start: 20200921, end: 20200923
  12. RELINIDE [Suspect]
     Active Substance: REPAGLINIDE
     Indication: DIABETES MELLITUS
     Dosage: 0.5 MILLIGRAM, 2X/DAY (BID)
     Route: 048
     Dates: start: 20201029, end: 20201110
  13. FLUCONAZOLE. [Suspect]
     Active Substance: FLUCONAZOLE
     Indication: CANDIDA INFECTION
     Dosage: 200 MILLIGRAM, ONCE DAILY (QD)
     Route: 042
     Dates: start: 20201003, end: 20201005
  14. URIEF [Suspect]
     Active Substance: SILODOSIN
     Indication: HYPERTENSION
     Dosage: 8 MILLIGRAM, ONCE DAILY (QD)
     Route: 048
     Dates: start: 20201002, end: 20201114
  15. JANUVIA [Suspect]
     Active Substance: SITAGLIPTIN PHOSPHATE
     Indication: DIABETES MELLITUS
     Dosage: 100 MILLIGRAM, ONCE DAILY (QD)
     Route: 048
     Dates: start: 20201005, end: 20201114
  16. CEFTAZIDIME. [Suspect]
     Active Substance: CEFTAZIDIME
     Indication: PNEUMONIA
     Dosage: 2 GRAM, 2X/DAY (BID)
     Dates: start: 20200921, end: 20200923
  17. TAKEPRON [Suspect]
     Active Substance: LANSOPRAZOLE
     Indication: GASTROINTESTINAL HAEMORRHAGE
     Dosage: 30 MILLIGRAM, ONCE DAILY (QD)
     Route: 048
     Dates: start: 20201009, end: 20201114
  18. TAPIMYCIN [Suspect]
     Active Substance: PIPERACILLIN SODIUM\TAZOBACTAM SODIUM
     Dosage: REDUCED DOSE
     Dates: start: 2020
  19. TAZOBACTAM SODIUM [Suspect]
     Active Substance: TAZOBACTAM SODIUM
     Indication: INFECTION
     Dosage: 2250 MILLIGRAM, 4X/DAY (QID)
     Route: 042
     Dates: start: 20200925, end: 20200928
  20. LEVOFLOXACIN. [Suspect]
     Active Substance: LEVOFLOXACIN
     Indication: PRODUCT USED FOR UNKNOWN INDICATION
     Dosage: UNK
  21. FAMVIR [Suspect]
     Active Substance: FAMCICLOVIR
     Indication: HERPES SIMPLEX
     Dosage: 250 MILLIGRAM, 3X/DAY (TID)
     Route: 048
     Dates: start: 20200925, end: 20201002
  22. LEVETIRACETAM. [Suspect]
     Active Substance: LEVETIRACETAM
     Indication: EPILEPSY
     Dosage: 500 MILLIGRAM, 2X/DAY (BID)
  23. PANTOPRAZOLE [Concomitant]
     Active Substance: PANTOPRAZOLE
     Indication: PRODUCT USED FOR UNKNOWN INDICATION
  24. FRAMYCIN [FRAMYCETIN SULFATE] [Concomitant]
     Indication: WOUND
     Dosage: UNK
     Dates: start: 20201112

REACTIONS (18)
  - Rash papular [Unknown]
  - Pneumonia pseudomonal [Unknown]
  - Eczema asteatotic [Unknown]
  - Tinea pedis [Unknown]
  - Carbuncle [Unknown]
  - Penile ulceration [Unknown]
  - Rash [Unknown]
  - Metabolic acidosis [Unknown]
  - Septic shock [Unknown]
  - Gastrointestinal haemorrhage [Unknown]
  - Haemoglobin decreased [Unknown]
  - Candida infection [Unknown]
  - Dermatitis [Unknown]
  - Atypical pneumonia [Unknown]
  - Stevens-Johnson syndrome [Fatal]
  - Acute kidney injury [Unknown]
  - Palate injury [Unknown]
  - Respiratory failure [Unknown]

NARRATIVE: CASE EVENT DATE: 20200925
